FAERS Safety Report 8334626-X (Version None)
Quarter: 2012Q2

REPORT INFORMATION
  Report Type: 
  Country: None (occurrence: None)
  Receive Date: 20120503
  Receipt Date: 20120426
  Transmission Date: 20120825
  Serious: Yes (Life-Threatening, Hospitalization)
  Sender: FDA-Public Use
  Company Number: JP-MERCK-1204USA03332

PATIENT
  Age: 52 Year
  Sex: Female
  Weight: 54 kg

DRUGS (3)
  1. ZETIA [Suspect]
     Indication: HYPERCHOLESTEROLAEMIA
     Route: 048
     Dates: start: 20111201, end: 20120101
  2. LIVALO [Suspect]
     Indication: HYPERCHOLESTEROLAEMIA
     Route: 048
     Dates: start: 20110720, end: 20110801
  3. CANDESARTAN CILEXETIL [Concomitant]
     Indication: PROTEIN URINE
     Route: 048
     Dates: start: 20110901, end: 20110101

REACTIONS (1)
  - MICROSCOPIC POLYANGIITIS [None]
